FAERS Safety Report 18385645 (Version 4)
Quarter: 2021Q1

REPORT INFORMATION
  Report Type: Spontaneous
  Country: JP (occurrence: JP)
  Receive Date: 20201015
  Receipt Date: 20210223
  Transmission Date: 20210419
  Serious: Yes (Other)
  Sender: FDA-Public Use
  Company Number: JP-ASTELLAS-2020JP015220

PATIENT
  Age: 85 Year
  Sex: Male

DRUGS (6)
  1. FRANDOL S [Suspect]
     Active Substance: ISOSORBIDE DINITRATE
     Indication: PRODUCT USED FOR UNKNOWN INDICATION
     Dosage: UNK UNK, UNKNOWN FREQ.
     Route: 050
  2. NITRODERM [Concomitant]
     Active Substance: NITROGLYCERIN
     Indication: PRODUCT USED FOR UNKNOWN INDICATION
     Dosage: UNK, UNKNOWN FREQ.
     Route: 065
  3. BETANIS [Suspect]
     Active Substance: MIRABEGRON
     Indication: HYPERTONIC BLADDER
     Route: 048
  4. DILTIAZEM HYDROCHLORIDE. [Concomitant]
     Active Substance: DILTIAZEM HYDROCHLORIDE
     Indication: PRODUCT USED FOR UNKNOWN INDICATION
     Dosage: UNK UNK, UNKNOWN FREQ.
     Route: 065
  5. BETANIS [Suspect]
     Active Substance: MIRABEGRON
     Route: 048
     Dates: start: 2021
  6. NITOROL [Concomitant]
     Active Substance: ISOSORBIDE DINITRATE
     Indication: ANGINA PECTORIS
     Dosage: UNK UNK, AS NEEDED
     Route: 048

REACTIONS (1)
  - Angina pectoris [Recovering/Resolving]
